FAERS Safety Report 17533861 (Version 3)
Quarter: 2020Q4

REPORT INFORMATION
  Report Type: Spontaneous
  Country: US (occurrence: US)
  Receive Date: 20200312
  Receipt Date: 20201005
  Transmission Date: 20210113
  Serious: No
  Sender: FDA-Public Use
  Company Number: US-PFIZER INC-2020037108

PATIENT
  Age: 34 Year
  Sex: Female

DRUGS (4)
  1. XELJANZ [Suspect]
     Active Substance: TOFACITINIB CITRATE
     Indication: COLITIS ULCERATIVE
     Dosage: 10 MG, TWICE A DAY
     Route: 048
  2. XELJANZ [Suspect]
     Active Substance: TOFACITINIB CITRATE
     Dosage: 5 MG, TWICE A DAY
     Route: 048
     Dates: start: 20200104
  3. XELJANZ [Suspect]
     Active Substance: TOFACITINIB CITRATE
     Dosage: 10 MG, 2X/DAY
     Route: 048
     Dates: start: 20200104
  4. PREDNISONE. [Concomitant]
     Active Substance: PREDNISONE
     Dosage: UNK (TAPERING DOSES)

REACTIONS (9)
  - Condition aggravated [Unknown]
  - Dizziness [Unknown]
  - Skin discolouration [Unknown]
  - Constipation [Unknown]
  - Nausea [Unknown]
  - Contusion [Unknown]
  - Abdominal pain upper [Unknown]
  - Increased tendency to bruise [Unknown]
  - Haematoma [Unknown]

NARRATIVE: CASE EVENT DATE: 2020
